FAERS Safety Report 7893370-3 (Version None)
Quarter: 2011Q4

REPORT INFORMATION
  Report Type: 
  Country: None (occurrence: None)
  Receive Date: 20111104
  Receipt Date: 20111031
  Transmission Date: 20120403
  Serious: Yes (Hospitalization)
  Sender: FDA-Public Use
  Company Number: CA-ROCHE-1008496

PATIENT
  Sex: Female
  Weight: 97.5 kg

DRUGS (8)
  1. FOLIC ACID [Concomitant]
  2. ACTONEL [Concomitant]
  3. CRESTOR [Concomitant]
  4. VASOTEC [Concomitant]
  5. METHOTREXATE [Concomitant]
  6. HYDROCHLOROTHIAZIDE [Concomitant]
  7. ACTEMRA [Suspect]
     Indication: RHEUMATOID ARTHRITIS
     Route: 042
     Dates: start: 20101019
  8. VITAMIN D [Concomitant]

REACTIONS (1)
  - KNEE ARTHROPLASTY [None]
